FAERS Safety Report 6177107-4 (Version None)
Quarter: 2009Q2

REPORT INFORMATION
  Report Type: 
  Country: None (occurrence: None)
  Receive Date: 20090430
  Receipt Date: 20090430
  Transmission Date: 20091009
  Serious: Yes (Other)
  Sender: FDA-Public Use
  Company Number: None

PATIENT
  Age: 57 Year
  Sex: Male
  Weight: 79.8331 kg

DRUGS (7)
  1. SEROQUEL [Suspect]
     Indication: HEADACHE
     Dosage: 25 MG.-100 MG. 1/DAY PO
     Route: 048
     Dates: start: 20080703, end: 20081103
  2. SEROQUEL [Suspect]
     Indication: MANIA
     Dosage: 25 MG.-100 MG. 1/DAY PO
     Route: 048
     Dates: start: 20080703, end: 20081103
  3. SEROQUEL [Suspect]
     Indication: SLEEP DISORDER THERAPY
     Dosage: 25 MG.-100 MG. 1/DAY PO
     Route: 048
     Dates: start: 20080703, end: 20081103
  4. ZYPREXA [Suspect]
     Indication: AGITATION
     Dosage: 5.0-7.5 MG. 1/DAY PO
     Route: 048
     Dates: start: 20081103, end: 20090429
  5. ZYPREXA [Suspect]
     Indication: PAIN
     Dosage: 5.0-7.5 MG. 1/DAY PO
     Route: 048
     Dates: start: 20081103, end: 20090429
  6. ZYPREXA [Suspect]
     Indication: SLEEP DISORDER THERAPY
     Dosage: 5.0-7.5 MG. 1/DAY PO
     Route: 048
     Dates: start: 20081103, end: 20090429
  7. ATIVAN [Concomitant]

REACTIONS (24)
  - ABDOMINAL DISTENSION [None]
  - AGITATION [None]
  - ALOPECIA [None]
  - ASTHENIA [None]
  - BODY FAT DISORDER [None]
  - CONDITION AGGRAVATED [None]
  - DEPRESSION [None]
  - DIZZINESS [None]
  - EYE MOVEMENT DISORDER [None]
  - FLAT AFFECT [None]
  - GLUCOSE TOLERANCE IMPAIRED [None]
  - HEADACHE [None]
  - HYPERACUSIS [None]
  - IMPAIRED WORK ABILITY [None]
  - INSOMNIA [None]
  - MULTI-ORGAN FAILURE [None]
  - NERVOUS SYSTEM DISORDER [None]
  - PAIN [None]
  - PHOTOPHOBIA [None]
  - RESTLESSNESS [None]
  - SEXUAL DYSFUNCTION [None]
  - THINKING ABNORMAL [None]
  - WEIGHT DECREASED [None]
  - WEIGHT INCREASED [None]
